FAERS Safety Report 7861657-6 (Version None)
Quarter: 2011Q4

REPORT INFORMATION
  Report Type: 
  Country: None (occurrence: None)
  Receive Date: 20111027
  Receipt Date: 20111019
  Transmission Date: 20120403
  Serious: Yes (Death)
  Sender: FDA-Public Use
  Company Number: JP-ROCHE-1006700

PATIENT
  Age: 59 Year
  Sex: Male
  Weight: 46 kg

DRUGS (10)
  1. FLUOROURACIL [Concomitant]
     Dosage: DOSAGE IS UNCERTAIN.
     Route: 040
     Dates: start: 20100801
  2. IRINOTECAN HCL [Concomitant]
     Indication: COLON CANCER METASTATIC
     Dosage: DOSAGE IS UNCERTAIN.
     Route: 041
     Dates: start: 20100801
  3. AVASTIN [Suspect]
     Dosage: DOSAGE IS UNCERTAIN.
     Route: 041
     Dates: start: 20100801
  4. LEVOLEUCOVORIN CALCIUM [Concomitant]
     Dosage: DOSAGE IS UNCERTAIN.
     Route: 041
     Dates: start: 20100801
  5. FLUOROURACIL [Concomitant]
     Indication: COLON CANCER METASTATIC
     Dosage: DOSAGE IS UNCERTAIN.
     Route: 040
     Dates: start: 20100101
  6. AVASTIN [Suspect]
     Indication: COLON CANCER METASTATIC
     Dosage: DOSAGE IS UNCERTAIN.
     Route: 041
     Dates: start: 20100401
  7. FLUOROURACIL [Concomitant]
     Dosage: DOSAGE IS UNCERTAIN.
     Route: 041
     Dates: start: 20100801
  8. OXALIPLATIN [Concomitant]
     Indication: COLON CANCER METASTATIC
     Dosage: DOSAGE IS UNCERTAIN.
     Route: 041
     Dates: start: 20100101
  9. FLUOROURACIL [Concomitant]
     Dosage: DOSAGE IS UNCERTAIN.
     Route: 041
     Dates: start: 20100101
  10. LEVOLEUCOVORIN CALCIUM [Concomitant]
     Indication: COLON CANCER METASTATIC
     Dosage: DOSAGE IS UNCERTAIN.
     Route: 041
     Dates: start: 20100101

REACTIONS (1)
  - LOWER GASTROINTESTINAL HAEMORRHAGE [None]
